FAERS Safety Report 8863388 (Version 1)
Quarter: 2012Q4

REPORT INFORMATION
  Report Type: 
  Country: DE (occurrence: DE)
  Receive Date: 20121024
  Receipt Date: 20121024
  Transmission Date: 20130627
  Serious: Yes (Other)
  Sender: FDA-Public Use
  Company Number: DE-TEVA-366498USA

PATIENT

DRUGS (3)
  1. TREANDA [Suspect]
     Indication: CHRONIC LYMPHOCYTIC LEUKAEMIA
     Dosage: Cyclic, on days 1 and 2 of each 28-day cycle
  2. RITUXIMAB [Suspect]
     Indication: CHRONIC LYMPHOCYTIC LEUKAEMIA
     Dosage: Cyclic, on day 0 for 1st course
  3. RITUXIMAB [Suspect]
     Dosage: Cyclic, on day 1 for all subsequent courses

REACTIONS (1)
  - Toxicity to various agents [Unknown]
